FAERS Safety Report 6570564-0 (Version None)
Quarter: 2010Q1

REPORT INFORMATION
  Report Type: 
  Country: None (occurrence: None)
  Receive Date: 20100204
  Receipt Date: 20100127
  Transmission Date: 20100710
  Serious: Yes (Disabling)
  Sender: FDA-Public Use
  Company Number: GXKR2010BE01244

PATIENT
  Age: 43 Year
  Sex: Female
  Weight: 70 kg

DRUGS (6)
  1. PARACETAMOL (NGX) [Suspect]
     Dosage: 1 G, QID (TOTAL INTAKE UNTIL DAY 3 OF SURGERY WAS 11 G)
     Route: 065
  2. KETOROLAC TROMETHAMINE [Concomitant]
     Dosage: 30 MG
     Route: 042
  3. PROPOFOL [Concomitant]
     Indication: INDUCTION OF ANAESTHESIA
  4. DESFLURANE [Concomitant]
     Indication: INDUCTION OF ANAESTHESIA
  5. SUFENTANIL [Concomitant]
     Indication: INDUCTION OF ANAESTHESIA
  6. ROCURONIUM [Concomitant]
     Indication: INDUCTION OF ANAESTHESIA

REACTIONS (6)
  - ACUTE HEPATIC FAILURE [None]
  - DRUG DETOXIFICATION [None]
  - HEPATIC STEATOSIS [None]
  - HEPATITIS [None]
  - LIVER TRANSPLANT [None]
  - MULTI-ORGAN FAILURE [None]
